FAERS Safety Report 16289727 (Version 1)
Quarter: 2019Q2

REPORT INFORMATION
  Report Type: Spontaneous
  Country: US (occurrence: US)
  Receive Date: 20190508
  Receipt Date: 20190508
  Transmission Date: 20190711
  Serious: Yes (Death)
  Sender: FDA-Public Use
  Company Number: None

PATIENT
  Age: 49 Year
  Sex: Male

DRUGS (6)
  1. OXYCODONE HCI [Concomitant]
  2. NICOTINE TRANSDERMAL [Concomitant]
     Active Substance: NICOTINE
  3. LANTUS SOLOSTART [Concomitant]
  4. ENTECAVIR 1 MG TAB BREC [Suspect]
     Active Substance: ENTECAVIR
     Indication: HEPATITIS VIRAL
     Route: 048
     Dates: start: 20181231
  5. VITAMIN D NOS [Concomitant]
     Active Substance: VITAMIN D NOS
  6. NOVOLOG [Concomitant]
     Active Substance: INSULIN ASPART

REACTIONS (1)
  - Death [None]

NARRATIVE: CASE EVENT DATE: 20190424
